FAERS Safety Report 4715612-5 (Version None)
Quarter: 2005Q3

REPORT INFORMATION
  Report Type: 
  Country: None (occurrence: None)
  Receive Date: 20050714
  Receipt Date: 20050701
  Transmission Date: 20060218
  Serious: Yes (Death)
  Sender: FDA-Public Use
  Company Number: 2005-DE-02549GD

PATIENT

DRUGS (7)
  1. MORPHINE [Suspect]
     Indication: ANALGESIC EFFECT
     Dosage: 4MG/HOUR IN THE EMERGENCY ROOM, 1 OR 2 MG FOR SURGERY (SEE TEXT), ED
     Route: 008
  2. ACETAMINOPHEN [Suspect]
     Indication: POSTOPERATIVE ANALGESIA
     Dosage: 4 G (NR, 6 HOURLY), NR
  3. BUPIVACAINE [Suspect]
     Indication: ANALGESIC EFFECT
     Dosage: EMERGENCY ROOM: 0.25%, BOLUS OF 25 MG, FOLLOWED BY A CONTINUOUS EPIDURAL INFUSION OF 0.125%; SURGERY
     Route: 008
  4. PROPOFOL [Suspect]
     Indication: ANAESTHESIA
     Dosage: 10 - 40 MCG/KM/MIN (NR), NR
  5. ROFECOXIB [Suspect]
     Indication: ANALGESIC EFFECT
     Dosage: 25 MG (NR, ONCE DAILY), NR
  6. CEFUROXIME [Suspect]
     Indication: INFECTION PROPHYLAXIS
     Dosage: 1.5 G (NR, ONCE (INTRAOPERATIVELY)), NR
  7. ENOXAPRIN (ENOXAPARIN) [Suspect]
     Indication: THROMBOSIS PROPHYLAXIS
     Dosage: 40 MG (NR), NR

REACTIONS (4)
  - DELIRIUM [None]
  - PNEUMONIA [None]
  - POST PROCEDURAL COMPLICATION [None]
  - RESPIRATORY FAILURE [None]
